FAERS Safety Report 25469130 (Version 1)
Quarter: 2025Q2

REPORT INFORMATION
  Report Type: Spontaneous
  Country: PT (occurrence: PT)
  Receive Date: 20250623
  Receipt Date: 20250623
  Transmission Date: 20250717
  Serious: Yes (Other)
  Sender: DEVA
  Company Number: PT-DEVA-2025-PT-000023

PATIENT
  Age: 67 Year
  Sex: Female

DRUGS (4)
  1. PANTOPRAZOLE SODIUM [Suspect]
     Active Substance: PANTOPRAZOLE SODIUM
     Indication: Gastrooesophageal reflux disease
  2. WARFARIN [Concomitant]
     Active Substance: WARFARIN
  3. BISOPROLOL [Concomitant]
     Active Substance: BISOPROLOL
  4. LORAZEPAM [Concomitant]
     Active Substance: LORAZEPAM

REACTIONS (2)
  - Intestinal villi atrophy [Unknown]
  - Gastrointestinal disorder [Unknown]
